FAERS Safety Report 4396649-5 (Version None)
Quarter: 2004Q3

REPORT INFORMATION
  Report Type: 
  Country: None (occurrence: None)
  Receive Date: 20040708
  Receipt Date: 20040629
  Transmission Date: 20050211
  Serious: No
  Sender: FDA-Public Use
  Company Number: 04H-093-0265104-00

PATIENT

DRUGS (1)
  1. MAGNESIUM SULFATE [Suspect]
     Dosage: 3-3.5 GRAM/HR FOR 12 WKS,
     Route: 064

REACTIONS (4)
  - BONE DISORDER [None]
  - DRUG EXPOSURE DURING PREGNANCY [None]
  - HYPERMAGNESAEMIA [None]
  - NEONATAL DISORDER [None]
